FAERS Safety Report 6157743-1 (Version None)
Quarter: 2009Q2

REPORT INFORMATION
  Report Type: 
  Country: None (occurrence: None)
  Receive Date: 20090416
  Receipt Date: 20090402
  Transmission Date: 20091009
  Serious: Yes (Hospitalization)
  Sender: FDA-Public Use
  Company Number: US-MERCK-0904USA01570

PATIENT
  Sex: Female

DRUGS (3)
  1. HYDRODIURIL [Suspect]
     Route: 048
  2. VOLTAREN [Suspect]
     Route: 065
  3. CYANOCOBALAMIN [Suspect]
     Route: 051

REACTIONS (4)
  - AZOTAEMIA [None]
  - DEHYDRATION [None]
  - HYPERGAMMAGLOBULINAEMIA [None]
  - HYPOKALAEMIA [None]
